FAERS Safety Report 6705097-1 (Version None)
Quarter: 2010Q2

REPORT INFORMATION
  Report Type: 
  Country: None (occurrence: None)
  Receive Date: 20100430
  Receipt Date: 20091204
  Transmission Date: 20101027
  Serious: No
  Sender: FDA-Public Use
  Company Number: US-ASTRAZENECA-2009SE30264

PATIENT
  Age: 23028 Day
  Sex: Male
  Weight: 104.3 kg

DRUGS (10)
  1. NEXIUM [Suspect]
     Route: 048
  2. TOPROL-XL [Suspect]
     Indication: BLOOD PRESSURE INCREASED
     Route: 048
  3. CRESTOR [Suspect]
     Indication: BLOOD CHOLESTEROL
     Route: 048
     Dates: start: 20091117
  4. PLAVIX [Concomitant]
     Indication: ANTIPLATELET THERAPY
  5. ALEVE [Concomitant]
     Indication: ANTIINFLAMMATORY THERAPY
  6. ASPIRIN [Concomitant]
     Indication: ANTIPLATELET THERAPY
  7. CELABREX [Concomitant]
     Indication: DEPRESSION
  8. CELEXA [Concomitant]
     Indication: DEPRESSION
  9. FISH OIL CAPSULE [Concomitant]
     Indication: SUPPLEMENTATION THERAPY
  10. WELBURTON [Concomitant]
     Indication: RHINITIS

REACTIONS (3)
  - DIARRHOEA [None]
  - DYSPEPSIA [None]
  - VOMITING [None]
